FAERS Safety Report 7519472-9 (Version None)
Quarter: 2011Q2

REPORT INFORMATION
  Report Type: 
  Country: None (occurrence: None)
  Receive Date: 20110602
  Receipt Date: 20110524
  Transmission Date: 20111010
  Serious: Yes (Disabling)
  Sender: FDA-Public Use
  Company Number: US-MERCK-1105USA03575

PATIENT
  Age: 24 Year
  Sex: Female

DRUGS (1)
  1. SINEMET [Suspect]
     Indication: DYSTONIA
     Route: 048

REACTIONS (4)
  - DYSKINESIA [None]
  - PAIN IN EXTREMITY [None]
  - ABASIA [None]
  - DRUG INEFFECTIVE [None]
